FAERS Safety Report 23880424 (Version 2)
Quarter: 2024Q3

REPORT INFORMATION
  Report Type: Report from Study
  Country: JP (occurrence: JP)
  Receive Date: 20240521
  Receipt Date: 20240807
  Transmission Date: 20241017
  Serious: Yes (Death, Other)
  Sender: MERCK
  Company Number: JP-MSD-M2024-13118

PATIENT
  Age: 80 Year
  Sex: Male
  Weight: 39 kg

DRUGS (4)
  1. CILASTATIN\IMIPENEM\RELEBACTAM MONOHYDRATE [Suspect]
     Active Substance: CILASTATIN\IMIPENEM\RELEBACTAM MONOHYDRATE
     Indication: Pneumonia pseudomonal
     Dosage: 1.25 GRAM, QID
     Route: 041
     Dates: start: 20220801, end: 20220814
  2. CILASTATIN\IMIPENEM\RELEBACTAM MONOHYDRATE [Suspect]
     Active Substance: CILASTATIN\IMIPENEM\RELEBACTAM MONOHYDRATE
     Dosage: 1 GRAM, QID
     Route: 041
     Dates: start: 20220924, end: 20221006
  3. CILASTATIN\IMIPENEM\RELEBACTAM MONOHYDRATE [Suspect]
     Active Substance: CILASTATIN\IMIPENEM\RELEBACTAM MONOHYDRATE
     Dosage: 1.25 GRAM, QID
     Route: 041
     Dates: start: 20221104, end: 20221117
  4. CILASTATIN\IMIPENEM\RELEBACTAM MONOHYDRATE [Suspect]
     Active Substance: CILASTATIN\IMIPENEM\RELEBACTAM MONOHYDRATE
     Dosage: 1.25 GRAM, QID
     Route: 041
     Dates: start: 20221122, end: 20221206

REACTIONS (2)
  - Pneumonia pseudomonal [Fatal]
  - Product use in unapproved indication [Unknown]

NARRATIVE: CASE EVENT DATE: 20220101
